FAERS Safety Report 5618819-8 (Version None)
Quarter: 2008Q1

REPORT INFORMATION
  Report Type: 
  Country: None (occurrence: None)
  Receive Date: 20080207
  Receipt Date: 20080123
  Transmission Date: 20080703
  Serious: Yes (Hospitalization)
  Sender: FDA-Public Use
  Company Number: DE-GENENTECH-255247

PATIENT
  Sex: Male
  Weight: 75 kg

DRUGS (3)
  1. BEVACIZUMAB [Suspect]
     Indication: NON-SMALL CELL LUNG CANCER
     Dosage: 1126 MG, UNK
     Route: 042
     Dates: start: 20071005
  2. CARBOPLATIN [Concomitant]
     Indication: NON-SMALL CELL LUNG CANCER
     Dates: start: 20071005
  3. GEMCITABINE [Concomitant]
     Indication: NON-SMALL CELL LUNG CANCER
     Dates: start: 20071005

REACTIONS (2)
  - ANAEMIA [None]
  - THROMBOCYTOPENIA [None]
